FAERS Safety Report 5350990-8 (Version None)
Quarter: 2007Q2

REPORT INFORMATION
  Report Type: 
  Country: None (occurrence: None)
  Receive Date: 20070606
  Receipt Date: 20070531
  Transmission Date: 20071010
  Serious: Yes (Hospitalization)
  Sender: FDA-Public Use
  Company Number: 2007SP003289

PATIENT
  Age: 51 Year
  Sex: Female
  Weight: 60.3284 kg

DRUGS (6)
  1. PEG-INTRON [Suspect]
     Indication: HEPATITIS C
     Dosage: 120 MCG, QW; SC
     Route: 058
     Dates: start: 20061018
  2. REBETOL [Suspect]
     Indication: HEPATITIS C
     Dosage: 1000 MC; QD; PO
     Route: 048
     Dates: start: 20061019
  3. PROZAC [Concomitant]
  4. LISINOPRIL [Concomitant]
  5. ALBUTEROL [Concomitant]
  6. PULMICORT [Concomitant]

REACTIONS (9)
  - ANAEMIA [None]
  - ASTHENIA [None]
  - CEREBROVASCULAR ACCIDENT [None]
  - DEPRESSION [None]
  - GAIT DISTURBANCE [None]
  - INFLUENZA LIKE ILLNESS [None]
  - INJECTION SITE BRUISING [None]
  - SCIATICA [None]
  - WHITE BLOOD CELL COUNT DECREASED [None]
